FAERS Safety Report 4342669-6 (Version None)
Quarter: 2004Q1

REPORT INFORMATION
  Report Type: 
  Country: None (occurrence: None)
  Receive Date: 20040213
  Receipt Date: 20031110
  Transmission Date: 20041129
  Serious: Yes (Other)
  Sender: FDA-Public Use
  Company Number: 351495

PATIENT
  Age: 51 Year
  Sex: Male
  Weight: 99.8 kg

DRUGS (4)
  1. PEGASYS [Suspect]
     Indication: HEPATITIS C
     Dosage: SUBCUTANEOUS
     Route: 058
     Dates: start: 20030923
  2. COPEGUS [Suspect]
     Indication: HEPATITIS C
     Dosage: 600 MG DAILY, ORAL
     Route: 048
     Dates: start: 20030923
  3. DIORAN (CHLORMEZANONE.DIPYRONE/IBUPROFEN) [Concomitant]
  4. ADVIL (IBUOPROFEN) [Concomitant]

REACTIONS (3)
  - HAEMATEMESIS [None]
  - NAUSEA [None]
  - PYREXIA [None]
